FAERS Safety Report 24942434 (Version 2)
Quarter: 2025Q1

REPORT INFORMATION
  Report Type: Spontaneous
  Country: RU (occurrence: RU)
  Receive Date: 20250207
  Receipt Date: 20250330
  Transmission Date: 20250409
  Serious: Yes (Death)
  Sender: JOHNSON AND JOHNSON
  Company Number: RU-JNJFOC-20250206564

PATIENT
  Sex: Female
  Weight: 92 kg

DRUGS (4)
  1. UPTRAVI [Suspect]
     Active Substance: SELEXIPAG
     Indication: Pulmonary hypertension
     Route: 048
     Dates: start: 202212, end: 202411
  2. UPTRAVI [Suspect]
     Active Substance: SELEXIPAG
     Indication: Pulmonary arterial hypertension
  3. RIOCIGUAT [Concomitant]
     Active Substance: RIOCIGUAT
  4. BOSENTAN [Concomitant]
     Active Substance: BOSENTAN

REACTIONS (1)
  - Death [Fatal]
